FAERS Safety Report 5821189-3 (Version None)
Quarter: 2008Q3

REPORT INFORMATION
  Report Type: 
  Country: None (occurrence: None)
  Receive Date: 20080724
  Receipt Date: 20080716
  Transmission Date: 20090109
  Serious: Yes (Hospitalization)
  Sender: FDA-Public Use
  Company Number: US-ABBOTT-08P-163-0463682-00

PATIENT
  Sex: Female
  Weight: 78.542 kg

DRUGS (10)
  1. CLARITHROMYCIN EXTENDED RELEASE [Suspect]
     Indication: DRUG USE FOR UNKNOWN INDICATION
     Route: 048
     Dates: start: 20070101, end: 20070101
  2. AMITRIPTYLINE HCL [Concomitant]
     Indication: INSOMNIA
     Route: 048
     Dates: start: 19960101
  3. OXYCODONE HCL [Concomitant]
     Indication: PAIN
     Route: 048
  4. METHYLPHENIDATE HCL [Concomitant]
     Indication: PSYCHOMOTOR HYPERACTIVITY
     Dosage: 2 TABS TWICE DAILY
     Route: 048
     Dates: start: 20060101
  5. ETODOLAC [Concomitant]
     Indication: DRUG USE FOR UNKNOWN INDICATION
     Route: 048
  6. CLONAZEPAM [Concomitant]
     Indication: DRUG USE FOR UNKNOWN INDICATION
     Dosage: 2-1MG TABS AT HS
     Route: 048
     Dates: start: 20060101
  7. VITAMINS OVER THE COUNTER (WOMEN'S) [Concomitant]
     Indication: DRUG USE FOR UNKNOWN INDICATION
     Dosage: PILL
     Route: 048
  8. CALCIUM [Concomitant]
     Indication: DRUG USE FOR UNKNOWN INDICATION
     Route: 048
  9. SWISS KRISS [Concomitant]
     Indication: CONSTIPATION
     Route: 048
  10. ESTROGENS CONJUGATED [Concomitant]
     Indication: DRUG USE FOR UNKNOWN INDICATION
     Route: 048
     Dates: start: 20050101

REACTIONS (1)
  - SOMNOLENCE [None]
